FAERS Safety Report 9595642 (Version 1)
Quarter: 2013Q4

REPORT INFORMATION
  Report Type: Report from Study
  Country: AR (occurrence: AR)
  Receive Date: 20131004
  Receipt Date: 20131004
  Transmission Date: 20140711
  Serious: Yes (Other)
  Sender: FDA-Public Use
  Company Number: PHHY2013AR111004

PATIENT
  Sex: Female

DRUGS (3)
  1. DIOVAN [Suspect]
     Indication: HYPERTENSION
     Dosage: 160 MG, UNK
     Route: 048
  2. EXFORGE [Suspect]
     Indication: HYPERTENSION
     Dosage: 160/5 MG, UNK
     Route: 048
  3. RASILEZ [Suspect]
     Dosage: UNK UKN, UNK

REACTIONS (2)
  - Maculopathy [Unknown]
  - Arthralgia [Recovering/Resolving]
